FAERS Safety Report 6185876-2 (Version None)
Quarter: 2009Q2

REPORT INFORMATION
  Report Type: 
  Country: None (occurrence: None)
  Receive Date: 20090511
  Receipt Date: 20090429
  Transmission Date: 20091009
  Serious: Yes (Other)
  Sender: FDA-Public Use
  Company Number: B0572506A

PATIENT
  Sex: Female
  Weight: 57.9 kg

DRUGS (4)
  1. LAMICTAL [Suspect]
     Indication: EPILEPSY
     Dosage: 25MG PER DAY
     Route: 048
     Dates: start: 20090220, end: 20090306
  2. TOPAMAX [Concomitant]
     Indication: EPILEPSY
     Route: 065
     Dates: start: 20050101
  3. CARBAMAZEPINE [Concomitant]
     Indication: EPILEPSY
     Route: 065
     Dates: start: 20050101
  4. CLONAZEPAM [Concomitant]
     Indication: EPILEPSY
     Route: 065
     Dates: start: 20050101

REACTIONS (6)
  - ASTHENIA [None]
  - HAEMOGLOBIN DECREASED [None]
  - MALAISE [None]
  - PALLOR [None]
  - RED BLOOD CELL COUNT DECREASED [None]
  - WHITE BLOOD CELL COUNT DECREASED [None]
